FAERS Safety Report 12364245 (Version 1)
Quarter: 2016Q2

REPORT INFORMATION
  Report Type: Spontaneous
  Country: DE (occurrence: DE)
  Receive Date: 20160512
  Receipt Date: 20160512
  Transmission Date: 20160815
  Serious: Yes (Other)
  Sender: FDA-Public Use
  Company Number: DE-TEVA-658929GER

PATIENT
  Age: 68 Year
  Sex: Male

DRUGS (3)
  1. MADOPAR [Concomitant]
     Active Substance: BENSERAZIDE HYDROCHLORIDE\LEVODOPA
  2. CLOZAPIN-RATIOPHARM 25 MG TABLETTEN [Suspect]
     Active Substance: CLOZAPINE
     Dosage: 12.5 MILLIGRAM DAILY; IN THE EVENING
     Route: 048
     Dates: start: 201603
  3. MEMANTIN [Concomitant]
     Active Substance: MEMANTINE
     Dosage: 20 MILLIGRAM DAILY; IN THE MORNING

REACTIONS (4)
  - Unresponsive to stimuli [Unknown]
  - Eye movement disorder [Unknown]
  - Vision blurred [None]
  - Eye disorder [Unknown]

NARRATIVE: CASE EVENT DATE: 201605
